FAERS Safety Report 4313878-7 (Version None)
Quarter: 2004Q1

REPORT INFORMATION
  Report Type: 
  Country: None (occurrence: None)
  Receive Date: 20040304
  Receipt Date: 20021230
  Transmission Date: 20041129
  Serious: Yes (Other)
  Sender: FDA-Public Use
  Company Number: WAES 0212USA02400

PATIENT
  Age: 72 Year
  Sex: Male

DRUGS (11)
  1. PRINIVIL [Suspect]
     Indication: HYPERTENSION
     Dosage: 40 MG/DAILY/PO
     Route: 048
  2. CELEXA [Suspect]
     Indication: DEPRESSION
     Dosage: SEE IMAGE
     Route: 048
     Dates: start: 20001101, end: 20021117
  3. CELEXA [Suspect]
     Indication: DEPRESSION
     Dosage: SEE IMAGE
     Route: 048
     Dates: start: 20021118, end: 20021125
  4. NITROGLYCERIN [Suspect]
     Indication: CORONARY ARTERY DISEASE
     Dosage: SEE IMAGE
     Route: 061
     Dates: start: 20021125
  5. NORVASC [Suspect]
     Indication: HYPERTENSION
     Dates: end: 20021123
  6. ZAROXOLYN [Suspect]
     Indication: HYPERTENSION
  7. LASIX [Suspect]
     Indication: HYPERTENSION
  8. ALDACTAZIDE [Suspect]
     Indication: HYPERTENSION
  9. LEXAPRO [Concomitant]
  10. LIPITOR [Concomitant]
  11. DIGOXIN [Concomitant]

REACTIONS (3)
  - BLOOD CREATININE INCREASED [None]
  - DEHYDRATION [None]
  - EPISTAXIS [None]
